FAERS Safety Report 10947461 (Version 1)
Quarter: 2015Q1

REPORT INFORMATION
  Report Type: Spontaneous
  Country: US (occurrence: None)
  Receive Date: 20150220
  Receipt Date: 20150220
  Transmission Date: 20150721
  Serious: No
  Sender: FDA-Public Use
  Company Number: 1000073576

PATIENT
  Age: 86 Year
  Sex: Female

DRUGS (2)
  1. PROAIR (ALBUTEROL SULFATE) (ALBUTEROL SULFATE) [Concomitant]
  2. TUDORZA PRESSAIR [Suspect]
     Active Substance: ACLIDINIUM BROMIDE
     Indication: EMPHYSEMA
     Dosage: 800 MCG (400 MCG,2 IN 1 D), RESPIRATORY
     Route: 055
     Dates: start: 201501

REACTIONS (2)
  - Headache [None]
  - Cough [None]

NARRATIVE: CASE EVENT DATE: 201501
